FAERS Safety Report 24257995 (Version 1)
Quarter: 2024Q3

REPORT INFORMATION
  Report Type: Spontaneous
  Country: CN (occurrence: CN)
  Receive Date: 20240828
  Receipt Date: 20240828
  Transmission Date: 20241017
  Serious: Yes (Hospitalization, Other)
  Sender: BAXTER
  Company Number: None

PATIENT
  Age: 58 Year
  Sex: Female
  Weight: 60 kg

DRUGS (4)
  1. CYCLOPHOSPHAMIDE [Suspect]
     Active Substance: CYCLOPHOSPHAMIDE
     Indication: Breast cancer female
     Dosage: 0.8 G, ONE TIME IN ONE DAY, DILUTED WITH 100 ML OF 0.9% SODIUM CHLORIDE
     Route: 041
     Dates: start: 20240718, end: 20240718
  2. SODIUM CHLORIDE [Suspect]
     Active Substance: SODIUM CHLORIDE
     Indication: Medication dilution
     Dosage: (0.9%) 100 ML, ONE TIME IN ONE DAY, USED TO DILUTE WITH 0.8 G OF CYCLOPHOSPHAMIDE
     Route: 041
     Dates: start: 20240718, end: 20240718
  3. SODIUM CHLORIDE [Suspect]
     Active Substance: SODIUM CHLORIDE
     Dosage: (0.9%) 250 ML, ONE TIME IN ONE DAY, USED TO DILUTE WITH 140 MG OF PHARMORUBICIN
     Route: 041
     Dates: start: 20240718, end: 20240718
  4. EPIRUBICIN [Suspect]
     Active Substance: EPIRUBICIN
     Indication: Breast cancer female
     Dosage: 140 MG, ONE TIME IN ONE DAY, DILUTED WITH 250 ML OF 0.9% SODIUM CHLORIDE
     Route: 041
     Dates: start: 20240718, end: 20240718

REACTIONS (1)
  - Myelosuppression [Recovering/Resolving]

NARRATIVE: CASE EVENT DATE: 20240801
